FAERS Safety Report 6311501-3 (Version None)
Quarter: 2009Q3

REPORT INFORMATION
  Report Type: 
  Country: None (occurrence: None)
  Receive Date: 20090817
  Receipt Date: 20090813
  Transmission Date: 20100115
  Serious: Yes (Death)
  Sender: FDA-Public Use
  Company Number: US-ASTRAZENECA-2009SE07888

PATIENT
  Age: 19 Year

DRUGS (1)
  1. TOPICAL LIDOCAINE [Suspect]
     Indication: ANAESTHESIA

REACTIONS (1)
  - DRUG TOXICITY [None]
